FAERS Safety Report 4869790-8 (Version None)
Quarter: 2005Q4

REPORT INFORMATION
  Report Type: 
  Country: None (occurrence: None)
  Receive Date: 20051223
  Receipt Date: 20051215
  Transmission Date: 20060501
  Serious: Yes (Death)
  Sender: FDA-Public Use
  Company Number: 2005BI018973

PATIENT
  Sex: Male

DRUGS (4)
  1. AMEVIVE [Suspect]
     Indication: PSORIASIS
     Dosage: 15MG;QW;IM
     Route: 030
     Dates: start: 20040603
  2. ASPIRIN [Concomitant]
  3. HCL [Concomitant]
  4. TRIAMCINOLONE [Concomitant]

REACTIONS (1)
  - TREATMENT NONCOMPLIANCE [None]
